FAERS Safety Report 9476366 (Version 2)
Quarter: 2013Q3

REPORT INFORMATION
  Report Type: Spontaneous
  Country: JP (occurrence: JP)
  Receive Date: 20130826
  Receipt Date: 20130830
  Transmission Date: 20140515
  Serious: Yes (Other)
  Sender: FDA-Public Use
  Company Number: JP-JNJFOC-20130812483

PATIENT
  Age: 57 Year
  Sex: Male

DRUGS (5)
  1. TRAMCET [Suspect]
     Indication: PAIN
     Dosage: AS NEEDED
     Route: 048
     Dates: start: 20130726, end: 20130727
  2. GASTER [Concomitant]
     Route: 065
  3. URSO [Concomitant]
     Route: 048
  4. NESINA [Concomitant]
     Route: 048
  5. LOXONIN [Concomitant]
     Route: 065

REACTIONS (2)
  - Feeling abnormal [Recovered/Resolved]
  - Inappropriate schedule of drug administration [Unknown]
